FAERS Safety Report 15343048 (Version 1)
Quarter: 2018Q3

REPORT INFORMATION
  Report Type: Report from Study
  Country: CL (occurrence: CL)
  Receive Date: 20180903
  Receipt Date: 20180903
  Transmission Date: 20181010
  Serious: Yes (Death, Life-Threatening, Hospitalization, Other)
  Sender: FDA-Public Use
  Company Number: CL-BRISTOL-MYERS SQUIBB COMPANY-BMS-2018-081602

PATIENT
  Sex: Male

DRUGS (1)
  1. NIVOLUMAB [Suspect]
     Active Substance: NIVOLUMAB
     Indication: RENAL CANCER
     Dosage: 280 MG, Q2WK
     Route: 042
     Dates: start: 20180531, end: 201808

REACTIONS (3)
  - General physical health deterioration [Recovering/Resolving]
  - Pneumonitis [Fatal]
  - Cardiac arrest [Fatal]
